FAERS Safety Report 24692010 (Version 1)
Quarter: 2024Q4

REPORT INFORMATION
  Report Type: Spontaneous
  Country: GB (occurrence: GB)
  Receive Date: 20241203
  Receipt Date: 20241203
  Transmission Date: 20250114
  Serious: Yes (Other)
  Sender: MYLAN
  Company Number: None

PATIENT
  Sex: Female

DRUGS (1)
  1. DOXYCYCLINE [Suspect]
     Active Substance: DOXYCYCLINE
     Indication: Wound infection
     Dosage: 100 MILLIGRAM, BID (100MG BD 1/52)
     Route: 065
     Dates: start: 20241122, end: 20241123

REACTIONS (1)
  - Tongue blistering [Recovered/Resolved]

NARRATIVE: CASE EVENT DATE: 20241122
